FAERS Safety Report 21021441 (Version 3)
Quarter: 2022Q3

REPORT INFORMATION
  Report Type: Spontaneous
  Country: FI (occurrence: FI)
  Receive Date: 20220629
  Receipt Date: 20220708
  Transmission Date: 20221026
  Serious: No
  Sender: FDA-Public Use
  Company Number: ALC2022FI003030

PATIENT

DRUGS (18)
  1. AZOPT [Suspect]
     Active Substance: BRINZOLAMIDE
     Indication: Product used for unknown indication
     Dosage: 1 UNK, QD (1 DOSE)
     Route: 065
  2. TRAVATAN [Suspect]
     Active Substance: TRAVOPROST
     Indication: Product used for unknown indication
     Dosage: 1 UNK, QD (1 DOSE);
     Route: 065
  3. ATORVASTATIN [Suspect]
     Active Substance: ATORVASTATIN
     Indication: Product used for unknown indication
     Dosage: 20 MG, QD
     Route: 065
  4. BISOPROLOL [Suspect]
     Active Substance: BISOPROLOL
     Indication: Product used for unknown indication
     Dosage: 2.5 MG, BID;
     Route: 065
  5. BISOPROLOL [Suspect]
     Active Substance: BISOPROLOL
     Dosage: 5 MG, BID;
     Route: 065
  6. ELIQUIS [Suspect]
     Active Substance: APIXABAN
     Indication: Anticoagulant therapy
     Dosage: 5 MG, BID
     Route: 065
  7. CALCIUM\CHOLECALCIFEROL [Concomitant]
     Active Substance: CALCIUM\CHOLECALCIFEROL
     Indication: Product used for unknown indication
     Dosage: UNK
     Route: 065
  8. SPARTOFER [Concomitant]
     Indication: Product used for unknown indication
     Dosage: 100 MG
     Route: 065
  9. FOLVITE [FOLIC ACID] [Concomitant]
     Indication: Product used for unknown indication
     Dosage: 1 MG
     Route: 065
  10. MAGNESIUM HYDROXIDE [Concomitant]
     Active Substance: MAGNESIUM HYDROXIDE
     Indication: Product used for unknown indication
     Dosage: 250 MG
     Route: 065
  11. BETOPTIC S [Concomitant]
     Active Substance: BETAXOLOL HYDROCHLORIDE
     Indication: Product used for unknown indication
     Dosage: 2.5 MG/ML
     Route: 065
  12. AMOXICILLIN TRIHYDRATE [Concomitant]
     Active Substance: AMOXICILLIN
     Indication: Product used for unknown indication
     Dosage: 500 MG
     Route: 065
  13. FUROSEMIDE [Concomitant]
     Active Substance: FUROSEMIDE
     Indication: Product used for unknown indication
     Dosage: 20 MG
     Route: 065
  14. KALIUMKLORID ORIFARM [Concomitant]
     Indication: Product used for unknown indication
     Dosage: 1 MG
     Route: 065
  15. PANADOL [Concomitant]
     Active Substance: ACETAMINOPHEN
     Indication: Product used for unknown indication
     Dosage: 500 MG
     Route: 065
  16. SERETIDE EVOHALER [FLUTICASONE;SALMETEROL] [Concomitant]
     Indication: Product used for unknown indication
     Dosage: 25/250
     Route: 065
  17. CARBALAN [Concomitant]
     Indication: Product used for unknown indication
     Dosage: UNK
     Route: 065
  18. ALBUTEROL SULFATE [Concomitant]
     Active Substance: ALBUTEROL SULFATE
     Indication: Product used for unknown indication
     Dosage: 0.1 MG
     Route: 065

REACTIONS (6)
  - Bowel movement irregularity [Unknown]
  - Contusion [Unknown]
  - Anaemia [Unknown]
  - Dyspepsia [Unknown]
  - Dry eye [Unknown]
  - Dry mouth [Unknown]
